FAERS Safety Report 7552965-7 (Version None)
Quarter: 2011Q2

REPORT INFORMATION
  Report Type: 
  Country: None (occurrence: None)
  Receive Date: 20110616
  Receipt Date: 20110606
  Transmission Date: 20111010
  Serious: Yes (Hospitalization)
  Sender: FDA-Public Use
  Company Number: US-ABBOTT-11P-163-0704009-00

PATIENT
  Sex: Female
  Weight: 84.444 kg

DRUGS (24)
  1. HUMIRA [Suspect]
     Indication: RHEUMATOID ARTHRITIS
     Route: 058
     Dates: start: 20010216, end: 20110106
  2. DITROPAN [Concomitant]
     Indication: PROPHYLAXIS
  3. DILTIAZEM [Concomitant]
     Indication: HYPERTENSION
     Route: 048
     Dates: start: 20100512
  4. HYDROCHLOROTHIAZIDE [Concomitant]
     Indication: OEDEMA
  5. ZOFRAN [Concomitant]
     Indication: DEPRESSION
     Route: 048
     Dates: start: 19990101
  6. BONIVA [Concomitant]
     Indication: OSTEOPOROSIS
     Route: 048
     Dates: start: 20061104, end: 20070927
  7. DITROPAN [Concomitant]
     Indication: URINARY INCONTINENCE
     Route: 048
     Dates: start: 20050726
  8. PHENERGAN HCL [Concomitant]
     Indication: RHEUMATOID ARTHRITIS
     Route: 048
     Dates: start: 20081128
  9. PRINIVIL [Concomitant]
     Indication: HYPERTENSION
     Route: 048
     Dates: start: 20060320
  10. PREMARIN [Concomitant]
     Indication: MENOPAUSE
     Route: 048
     Dates: start: 20070726
  11. PREVACID [Concomitant]
     Indication: DYSPEPSIA
     Route: 058
     Dates: start: 20080807
  12. SULINDAC [Concomitant]
     Indication: RHEUMATOID ARTHRITIS
     Route: 048
     Dates: start: 20090523
  13. PREDNISONE [Concomitant]
     Indication: RHEUMATOID ARTHRITIS
     Route: 048
     Dates: start: 20090209
  14. LIPITOR [Concomitant]
     Indication: BLOOD CHOLESTEROL INCREASED
     Route: 048
     Dates: start: 20040928
  15. PREDNISONE [Concomitant]
     Route: 048
     Dates: start: 20060714, end: 20060901
  16. PROPOXYPHENE HYDROCHLORIDE [Concomitant]
     Indication: RHEUMATOID ARTHRITIS
     Route: 048
     Dates: start: 19960901
  17. HYDROCHLOROTHIAZIDE [Concomitant]
     Indication: FLUID RETENTION
     Route: 048
     Dates: start: 20060224
  18. BONIVA [Concomitant]
     Indication: OSTEOARTHRITIS
     Route: 048
     Dates: start: 20091125
  19. ACTONEL [Concomitant]
     Indication: OSTEOPOROSIS
     Route: 048
     Dates: start: 20071004
  20. PREVACID [Concomitant]
     Indication: ANAEMIA
  21. PREVACID [Concomitant]
     Indication: ANAEMIA PROPHYLAXIS
  22. PREDNISONE [Concomitant]
     Route: 048
     Dates: start: 20060901, end: 20061116
  23. HYDROCHLOROTHIAZIDE [Concomitant]
     Indication: ROUTINE HEALTH MAINTENANCE
  24. SALINE NASAL SPRAY [Concomitant]
     Indication: EPISTAXIS
     Route: 045
     Dates: start: 20100529

REACTIONS (1)
  - ACUTE RESPIRATORY FAILURE [None]
